FAERS Safety Report 9812837 (Version 1)
Quarter: 2014Q1

REPORT INFORMATION
  Report Type: Spontaneous
  Country: US (occurrence: None)
  Receive Date: 20140108
  Receipt Date: 20140108
  Transmission Date: 20141002
  Serious: Yes (Hospitalization)
  Sender: FDA-Public Use
  Company Number: US-ALKEM-000455

PATIENT
  Age: 3 Year
  Sex: Male

DRUGS (1)
  1. AMLODIPINE (AMLODIPINE) [Suspect]

REACTIONS (7)
  - Heart rate decreased [None]
  - Accidental exposure to product by child [None]
  - Pallor [None]
  - Respiratory rate increased [None]
  - Feeling cold [None]
  - Hypoperfusion [None]
  - Toxicity to various agents [None]
